FAERS Safety Report 23820003 (Version 1)
Quarter: 2024Q2

REPORT INFORMATION
  Report Type: Spontaneous
  Country: US (occurrence: None)
  Receive Date: 20240503
  Receipt Date: 20240503
  Transmission Date: 20240716
  Serious: Yes (Hospitalization)
  Sender: FDA-Public Use
  Company Number: None

PATIENT
  Age: 84 Year
  Sex: Male
  Weight: 83 kg

DRUGS (2)
  1. IRON DEXTRAN [Suspect]
     Active Substance: IRON DEXTRAN
     Indication: Blood iron decreased
     Dosage: FREQUENCY : ONCE;?
     Route: 042
     Dates: start: 20221024, end: 20221024
  2. IRON DEXTRAN [Suspect]
     Active Substance: IRON DEXTRAN
     Indication: Haemoglobin decreased

REACTIONS (3)
  - Hypotension [None]
  - Sedation [None]
  - Vomiting [None]

NARRATIVE: CASE EVENT DATE: 20221031
